FAERS Safety Report 12507180 (Version 1)
Quarter: 2016Q2

REPORT INFORMATION
  Report Type: Report from Study
  Country: US (occurrence: US)
  Receive Date: 20160629
  Receipt Date: 20160629
  Transmission Date: 20160815
  Serious: Yes (Other)
  Sender: FDA-Public Use
  Company Number: US-AMGEN-USASL2016082993

PATIENT
  Age: 67 Year
  Sex: Female

DRUGS (1)
  1. ENBREL [Suspect]
     Active Substance: ETANERCEPT
     Indication: RHEUMATOID ARTHRITIS
     Dosage: UNK
     Route: 065

REACTIONS (10)
  - Arthrodesis [Unknown]
  - Injection site pain [Unknown]
  - Toe operation [Unknown]
  - Surgery [Unknown]
  - Somnolence [Unknown]
  - Renal failure [Unknown]
  - Foot fracture [Unknown]
  - Joint arthroplasty [Unknown]
  - Intervertebral disc degeneration [Unknown]
  - Walking aid user [Unknown]

NARRATIVE: CASE EVENT DATE: 2016
